FAERS Safety Report 7224615-0 (Version None)
Quarter: 2011Q1

REPORT INFORMATION
  Report Type: 
  Country: None (occurrence: None)
  Receive Date: 20110106
  Receipt Date: 20110106
  Transmission Date: 20110831
  Serious: Yes (Hospitalization)
  Sender: FDA-Public Use
  Company Number: None

PATIENT
  Age: 94 Year
  Sex: Female

DRUGS (7)
  1. TYLENOL-500 [Concomitant]
  2. PROSTAT [Concomitant]
  3. ASPIRIN [Suspect]
     Indication: TRANSIENT ISCHAEMIC ATTACK
     Dosage: 81MG QMWF PO CHRONIC
     Route: 048
  4. SENOKOT [Concomitant]
  5. CRANBERRY FRUIT JUICE [Concomitant]
  6. MOBIC [Suspect]
     Dosage: 7.5MG EOD PO CHRONIC
     Route: 048
  7. M.V.I. [Concomitant]

REACTIONS (8)
  - HAEMATOCRIT DECREASED [None]
  - INTERNATIONAL NORMALISED RATIO INCREASED [None]
  - BLOOD UREA INCREASED [None]
  - HAEMOGLOBIN DECREASED [None]
  - HYPOTENSION [None]
  - GASTRIC ULCER [None]
  - HIATUS HERNIA [None]
  - GASTROINTESTINAL HAEMORRHAGE [None]
